FAERS Safety Report 18889669 (Version 2)
Quarter: 2021Q2

REPORT INFORMATION
  Report Type: Report from Study
  Country: US (occurrence: US)
  Receive Date: 20210213
  Receipt Date: 20210415
  Transmission Date: 20210717
  Serious: Yes (Other)
  Sender: FDA-Public Use
  Company Number: US-TAKEDA-2020TUS061337

PATIENT
  Sex: Female

DRUGS (1)
  1. VEDOLIZUMAB [Suspect]
     Active Substance: VEDOLIZUMAB
     Indication: COLITIS ULCERATIVE
     Dosage: 300 MILLIGRAM
     Route: 042
     Dates: start: 20201021

REACTIONS (8)
  - Skin irritation [Unknown]
  - Skin tightness [Recovering/Resolving]
  - Frequent bowel movements [Unknown]
  - Liver function test decreased [Unknown]
  - Diarrhoea [Unknown]
  - Haematochezia [Unknown]
  - Erythema [Recovered/Resolved]
  - Skin exfoliation [Unknown]
